FAERS Safety Report 5237254-8 (Version None)
Quarter: 2007Q1

REPORT INFORMATION
  Report Type: 
  Country: None (occurrence: None)
  Receive Date: 20070213
  Receipt Date: 20070129
  Transmission Date: 20070707
  Serious: Yes (Hospitalization)
  Sender: FDA-Public Use
  Company Number: US-ROCHE-470426

PATIENT
  Age: 18 Year
  Sex: Male
  Weight: 102.1 kg

DRUGS (6)
  1. ACCUTANE [Suspect]
     Indication: DRUG USE FOR UNKNOWN INDICATION
     Route: 065
     Dates: start: 19990315, end: 19990915
  2. ACCUTANE [Suspect]
     Dosage: 40 MG TWICE DAILY WITH A MAINTANENCE DOSE OF 40 MG EVERY OTHER DAY.
     Route: 065
     Dates: start: 19970315, end: 19970515
  3. ACCUTANE [Suspect]
     Route: 065
     Dates: start: 19870615, end: 19870815
  4. DEPAKOTE [Concomitant]
     Dosage: GENERIC REPORTED AS DIALPROEX SODIUM.
  5. BACTRIM DS [Concomitant]
     Route: 048
     Dates: start: 19981115
  6. RETIN-A [Concomitant]
     Indication: ACNE
     Dosage: STRENGTH REPORTED AS 0.01.
     Route: 061

REACTIONS (3)
  - DEPRESSION [None]
  - MULTIPLE SCLEROSIS [None]
  - SUICIDAL IDEATION [None]
